FAERS Safety Report 7474803-3 (Version None)
Quarter: 2011Q2

REPORT INFORMATION
  Report Type: 
  Country: None (occurrence: None)
  Receive Date: 20110512
  Receipt Date: 20110328
  Transmission Date: 20111010
  Serious: Yes (Hospitalization, Other)
  Sender: FDA-Public Use
  Company Number: US-BAYER-201039953NA

PATIENT
  Age: 26 Year
  Sex: Female
  Weight: 54 kg

DRUGS (6)
  1. ISOMETHEPTENE/DICHLORALPHENAZONE/APAP [Concomitant]
     Indication: MIGRAINE
     Dosage: UNK
     Dates: start: 20070101
  2. TREXIMET [Concomitant]
     Indication: MIGRAINE
     Dosage: UNK
     Dates: start: 20080101
  3. SINGULAIR [Concomitant]
     Indication: MULTIPLE ALLERGIES
     Dosage: UNK
     Dates: start: 20080101
  4. YAZ [Suspect]
     Indication: ACNE
     Dosage: UNK
     Route: 048
     Dates: start: 20080801, end: 20090201
  5. HYDROCODONE [HYDROCODONE] [Concomitant]
     Dosage: UNK
     Dates: start: 20080101
  6. YAZ [Suspect]
     Indication: CONTRACEPTION

REACTIONS (4)
  - CHOLECYSTITIS [None]
  - BILIARY DYSKINESIA [None]
  - CHOLELITHIASIS [None]
  - CHOLECYSTECTOMY [None]
